FAERS Safety Report 6082033-5 (Version None)
Quarter: 2009Q1

REPORT INFORMATION
  Report Type: 
  Country: None (occurrence: None)
  Receive Date: 20090218
  Receipt Date: 20080910
  Transmission Date: 20090719
  Serious: No
  Sender: FDA-Public Use
  Company Number: US-BRISTOL-MYERS SQUIBB COMPANY-14330708

PATIENT
  Sex: Male

DRUGS (3)
  1. METFORMIN HCL [Suspect]
     Dosage: SINCE 01AUG08 TAKING 1000MG AT NIGHT INSTEAD OF 1000 MG IN THE MORNING + 1000 AT NIGHT.
     Dates: start: 19991008
  2. ACTOS [Suspect]
  3. LANTUS [Suspect]

REACTIONS (1)
  - BLOOD GLUCOSE DECREASED [None]
